FAERS Safety Report 4847997-3 (Version None)
Quarter: 2005Q4

REPORT INFORMATION
  Report Type: 
  Country: None (occurrence: None)
  Receive Date: 20051206
  Receipt Date: 20051115
  Transmission Date: 20060501
  Serious: Yes (Other)
  Sender: FDA-Public Use
  Company Number: US200511001217

PATIENT
  Age: 26 Year
  Sex: Female

DRUGS (4)
  1. CYMBALTA [Suspect]
     Dates: start: 20050419, end: 20050422
  2. EFFEXOR [Concomitant]
  3. DAYPRO /USA/(OXAPROZIN) [Concomitant]
  4. ORTHO TRI-CYCLEN [Concomitant]

REACTIONS (23)
  - ABDOMINAL PAIN [None]
  - ARTHROPOD BITE [None]
  - BIPOLAR DISORDER [None]
  - CARDIAC DISORDER [None]
  - DIZZINESS [None]
  - DRUG HYPERSENSITIVITY [None]
  - DRY EYE [None]
  - ERYTHEMA MULTIFORME [None]
  - EYE DISORDER [None]
  - EYE PAIN [None]
  - FATIGUE [None]
  - FEELING ABNORMAL [None]
  - HYPERHIDROSIS [None]
  - HYPOAESTHESIA [None]
  - ILL-DEFINED DISORDER [None]
  - INSOMNIA [None]
  - LOSS OF CONSCIOUSNESS [None]
  - NAUSEA [None]
  - NERVOUS SYSTEM DISORDER [None]
  - PAIN IN EXTREMITY [None]
  - PARAESTHESIA [None]
  - SOMNOLENCE [None]
  - STEVENS-JOHNSON SYNDROME [None]
